FAERS Safety Report 23447265 (Version 3)
Quarter: 2024Q1

REPORT INFORMATION
  Report Type: Report from Study
  Country: CA (occurrence: CA)
  Receive Date: 20240126
  Receipt Date: 20240214
  Transmission Date: 20240409
  Serious: No
  Sender: FDA-Public Use
  Company Number: CA-BoehringerIngelheim-2024-BI-002343

PATIENT
  Age: 78 Year
  Sex: Female

DRUGS (2)
  1. GILOTRIF [Suspect]
     Active Substance: AFATINIB
     Indication: Lung cancer metastatic
     Dates: start: 20240110, end: 20240112
  2. GILOTRIF [Suspect]
     Active Substance: AFATINIB
     Dates: start: 20240115

REACTIONS (4)
  - Diarrhoea [Recovering/Resolving]
  - Nail disorder [Not Recovered/Not Resolved]
  - Oral pain [Not Recovered/Not Resolved]
  - Mouth ulceration [Not Recovered/Not Resolved]

NARRATIVE: CASE EVENT DATE: 20240110
